FAERS Safety Report 11233590 (Version 1)
Quarter: 2015Q3

REPORT INFORMATION
  Report Type: Spontaneous
  Country: US (occurrence: US)
  Receive Date: 20150702
  Receipt Date: 20150702
  Transmission Date: 20151125
  Serious: Yes (Other)
  Sender: FDA-Public Use
  Company Number: US-INDOCO-000006

PATIENT
  Age: 57 Year
  Sex: Female

DRUGS (1)
  1. BRIMONIDINE [Suspect]
     Active Substance: BRIMONIDINE TARTRATE
     Indication: ROSACEA
     Route: 061

REACTIONS (3)
  - Off label use [Unknown]
  - Telangiectasia [Recovering/Resolving]
  - Erythema [Recovering/Resolving]
